FAERS Safety Report 8116234-9 (Version None)
Quarter: 2012Q1

REPORT INFORMATION
  Report Type: 
  Country: None (occurrence: None)
  Receive Date: 20120206
  Receipt Date: 20120130
  Transmission Date: 20120608
  Serious: Yes (Other)
  Sender: FDA-Public Use
  Company Number: NO-ABBOTT-12P-122-0899797-00

PATIENT
  Sex: Male
  Weight: 60 kg

DRUGS (4)
  1. IBUX [Concomitant]
     Indication: PRODUCT USED FOR UNKNOWN INDICATION
     Dosage: UP TO 3 TIMES DAILY
  2. HUMIRA [Suspect]
     Indication: ANKYLOSING SPONDYLITIS
     Dates: start: 20090101, end: 20110101
  3. PINEX FORTE [Concomitant]
     Indication: PRODUCT USED FOR UNKNOWN INDICATION
     Dosage: UP TO 3, AS NEEDED
  4. ACETAMINOPHEN [Concomitant]
     Indication: PRODUCT USED FOR UNKNOWN INDICATION
     Dosage: IN COMBINATION WITH IBUX

REACTIONS (12)
  - INAPPROPRIATE AFFECT [None]
  - DISCOMFORT [None]
  - NASAL CONGESTION [None]
  - FALL [None]
  - DYSPEPSIA [None]
  - FATIGUE [None]
  - CATAPLEXY [None]
  - NARCOLEPSY [None]
  - DIARRHOEA [None]
  - IRIDOCYCLITIS [None]
  - ANGER [None]
  - EMOTIONAL DISORDER [None]
